FAERS Safety Report 9927820 (Version 1)
Quarter: 2014Q1

REPORT INFORMATION
  Report Type: Spontaneous
  Country: NL (occurrence: None)
  Receive Date: 20140221
  Receipt Date: 20140221
  Transmission Date: 20141002
  Serious: Yes (Life-Threatening)
  Sender: FDA-Public Use
  Company Number: 2014P1001294

PATIENT
  Age: 82 Year
  Sex: Male

DRUGS (1)
  1. AMOXICILLIN + CLAVULANATE POTASSIUM [Suspect]
     Indication: SYSTEMIC INFLAMMATORY RESPONSE SYNDROME
     Route: 042

REACTIONS (4)
  - Cardio-respiratory arrest [None]
  - Rash erythematous [None]
  - Drug hypersensitivity [None]
  - Kounis syndrome [None]
